FAERS Safety Report 13973591 (Version 2)
Quarter: 2017Q4

REPORT INFORMATION
  Report Type: Spontaneous
  Country: US (occurrence: US)
  Receive Date: 20170915
  Receipt Date: 20171010
  Transmission Date: 20180321
  Serious: Yes (Other)
  Sender: FDA-Public Use
  Company Number: US-009507513-1709USA003785

PATIENT
  Age: 24 Year
  Sex: Female

DRUGS (2)
  1. NOXAFIL [Suspect]
     Active Substance: POSACONAZOLE
     Indication: ANTIFUNGAL PROPHYLAXIS
     Dosage: 300 MG, QD
     Route: 048
  2. CYTARABINE. [Interacting]
     Active Substance: CYTARABINE
     Dosage: 100 MG/M2 CONTINUOUS INFUSION OVER 24 H DAILY

REACTIONS (3)
  - Bone marrow failure [Unknown]
  - Drug interaction [Unknown]
  - Palmar-plantar erythrodysaesthesia syndrome [Unknown]
